FAERS Safety Report 17479945 (Version 2)
Quarter: 2020Q1

REPORT INFORMATION
  Report Type: Report from Study
  Country: US (occurrence: US)
  Receive Date: 20200228
  Receipt Date: 20200319
  Transmission Date: 20200409
  Serious: Yes (Death, Hospitalization, Other)
  Sender: FDA-Public Use
  Company Number: US-GILEAD-2020-0452398

PATIENT
  Age: 50 Year
  Sex: Female
  Weight: 152.83 kg

DRUGS (2)
  1. SILDENAFIL. [Concomitant]
     Active Substance: SILDENAFIL
     Dosage: UNK
  2. AMBRISENTAN [Suspect]
     Active Substance: AMBRISENTAN
     Indication: PULMONARY ARTERIAL HYPERTENSION
     Dosage: 10 MG, QD
     Route: 048
     Dates: start: 20190913

REACTIONS (5)
  - Death [Fatal]
  - Fall [Fatal]
  - Oxygen consumption decreased [Fatal]
  - General physical health deterioration [Fatal]
  - Withdrawal of life support [Fatal]

NARRATIVE: CASE EVENT DATE: 202002
